FAERS Safety Report 11102391 (Version 1)
Quarter: 2015Q2

REPORT INFORMATION
  Report Type: Spontaneous
  Country: US (occurrence: None)
  Receive Date: 20150508
  Receipt Date: 20150508
  Transmission Date: 20150821
  Serious: No
  Sender: FDA-Public Use
  Company Number: None

PATIENT
  Age: 49 Year
  Sex: Female
  Weight: 129.73 kg

DRUGS (3)
  1. SUBOXONE [Suspect]
     Active Substance: BUPRENORPHINE HYDROCHLORIDE\NALOXONE HYDROCHLORIDE
     Indication: DRUG DEPENDENCE
     Dosage: SUBOXONE FILM, QD, SUBLINGUAL
     Route: 060
     Dates: start: 20150218, end: 20150506
  2. BRUPRENORPHINE [Concomitant]
  3. NALOXONE TABLETS [Concomitant]

REACTIONS (4)
  - Swollen tongue [None]
  - Oral disorder [None]
  - Pruritus [None]
  - Swelling [None]

NARRATIVE: CASE EVENT DATE: 20150501
